FAERS Safety Report 4792921-5 (Version None)
Quarter: 2005Q4

REPORT INFORMATION
  Report Type: 
  Country: None (occurrence: None)
  Receive Date: 20051010
  Receipt Date: 20050929
  Transmission Date: 20060501
  Serious: Yes (Other)
  Sender: FDA-Public Use
  Company Number: CA-ROCHE-419605

PATIENT
  Age: 5 Year
  Sex: Male

DRUGS (7)
  1. NAPROXEN [Suspect]
     Indication: DRUG USE FOR UNKNOWN INDICATION
     Route: 065
  2. METHOTREXATE [Suspect]
     Indication: DRUG USE FOR UNKNOWN INDICATION
     Route: 058
  3. PREDNISONE [Concomitant]
  4. FISH OIL [Concomitant]
  5. WATER [Concomitant]
  6. 1 CONCOMITANT DRUG [Concomitant]
     Dosage: REPORTED AS ADRENAL GLAND EXTRACT
  7. 1 CONCOMITANT DRUG [Concomitant]
     Dosage: REPORTED AS BOVINE EXTRACT

REACTIONS (9)
  - COGNITIVE DISORDER [None]
  - CRYING [None]
  - DEPRESSION [None]
  - DISTURBANCE IN ATTENTION [None]
  - DIZZINESS [None]
  - HEADACHE [None]
  - IRRITABILITY [None]
  - SPEECH DISORDER [None]
  - SUICIDAL IDEATION [None]
